FAERS Safety Report 9493770 (Version 5)
Quarter: 2014Q1

REPORT INFORMATION
  Report Type: Spontaneous
  Country: IE (occurrence: IE)
  Receive Date: 20130902
  Receipt Date: 20140224
  Transmission Date: 20141002
  Serious: Yes (Hospitalization)
  Sender: FDA-Public Use
  Company Number: IE-BRISTOL-MYERS SQUIBB COMPANY-19079441

PATIENT
  Age: 88 Year
  Sex: Male

DRUGS (5)
  1. ELIQUIS [Suspect]
     Indication: DEEP VEIN THROMBOSIS
     Route: 048
     Dates: start: 20130624
  2. ACETYLSALICYLIC ACID [Suspect]
     Indication: CORONARY ARTERY STENOSIS
     Route: 048
  3. CIPROFLOXACIN [Suspect]
     Indication: POST PROCEDURAL INFECTION
     Dosage: 03JUL12-09JUL2012:400MG:2/DAY?UNK:UNK:250MG:2/DAY
     Route: 048
  4. ENOXAPARIN [Concomitant]
  5. HEPARIN [Concomitant]
     Route: 058

REACTIONS (5)
  - Post procedural haemorrhage [Unknown]
  - Wound infection [Recovered/Resolved]
  - Angina pectoris [Unknown]
  - Renal failure [Unknown]
  - Tendon rupture [Unknown]
